FAERS Safety Report 6811732-X (Version None)
Quarter: 2010Q3

REPORT INFORMATION
  Report Type: 
  Country: None (occurrence: None)
  Receive Date: 20100701
  Receipt Date: 20100624
  Transmission Date: 20110219
  Serious: No
  Sender: FDA-Public Use
  Company Number: US-BIOGENIDEC-2010BI021187

PATIENT
  Age: 46 Year
  Sex: Female

DRUGS (1)
  1. AVONEX [Suspect]
     Indication: MULTIPLE SCLEROSIS
     Route: 030
     Dates: start: 20060101

REACTIONS (9)
  - ARTHRALGIA [None]
  - BURSITIS [None]
  - CARTILAGE INJURY [None]
  - INFLUENZA LIKE ILLNESS [None]
  - JOINT LOCK [None]
  - JOINT STIFFNESS [None]
  - MUSCLE SPASTICITY [None]
  - MUSCULOSKELETAL PAIN [None]
  - RED BLOOD CELL COUNT ABNORMAL [None]
